FAERS Safety Report 5587714-5 (Version None)
Quarter: 2007Q4

REPORT INFORMATION
  Report Type: 
  Country: None (occurrence: None)
  Receive Date: 20071207
  Receipt Date: 20071002
  Transmission Date: 20080405
  Serious: Yes (Hospitalization, Other)
  Sender: FDA-Public Use
  Company Number: 07-392

PATIENT
  Sex: Female

DRUGS (2)
  1. ALEVE [Suspect]
     Dosage: DAILY, ORAL
     Route: 048
  2. COUMADIN [Concomitant]

REACTIONS (1)
  - GASTRIC HAEMORRHAGE [None]
